FAERS Safety Report 17827908 (Version 1)
Quarter: 2020Q2

REPORT INFORMATION
  Report Type: Spontaneous
  Country: US (occurrence: US)
  Receive Date: 20200526
  Receipt Date: 20200526
  Transmission Date: 20200714
  Serious: Yes (Other)
  Sender: FDA-Public Use
  Company Number: None

PATIENT
  Age: 59 Year
  Sex: Male
  Weight: 109 kg

DRUGS (12)
  1. REMDESIVIR. [Suspect]
     Active Substance: REMDESIVIR
     Indication: COVID-19
     Route: 042
     Dates: start: 20200522, end: 20200524
  2. IMODIUM [Concomitant]
     Active Substance: LOPERAMIDE HYDROCHLORIDE
     Dates: start: 20200523
  3. PHOSPHORUS [Concomitant]
     Active Substance: PHOSPHORUS
     Dates: start: 20200523, end: 20200525
  4. LOPRESSOR [Concomitant]
     Active Substance: METOPROLOL TARTRATE
     Dates: start: 20200524
  5. PANTOPRAZOLE [Concomitant]
     Active Substance: PANTOPRAZOLE
     Dates: start: 20200521
  6. LOVENOX [Concomitant]
     Active Substance: ENOXAPARIN SODIUM
     Dates: start: 20200521
  7. ASPIRIN. [Concomitant]
     Active Substance: ASPIRIN
     Dates: start: 20200524
  8. ATORVASTATIN [Concomitant]
     Active Substance: ATORVASTATIN
     Dates: start: 20200520, end: 20200525
  9. LOSARTAN. [Concomitant]
     Active Substance: LOSARTAN
     Dates: start: 20200521
  10. METOPROLOL. [Concomitant]
     Active Substance: METOPROLOL
     Dates: start: 20200524
  11. TORADOL [Concomitant]
     Active Substance: KETOROLAC TROMETHAMINE
     Dates: start: 20200524, end: 20200524
  12. DILTIAZEM. [Concomitant]
     Active Substance: DILTIAZEM
     Dates: start: 20200524

REACTIONS (5)
  - Alanine aminotransferase increased [None]
  - Condition aggravated [None]
  - Enteritis [None]
  - Aspartate aminotransferase increased [None]
  - Blood alkaline phosphatase increased [None]

NARRATIVE: CASE EVENT DATE: 20200525
